FAERS Safety Report 10399499 (Version 4)
Quarter: 2014Q4

REPORT INFORMATION
  Report Type: Spontaneous
  Country: DE (occurrence: DE)
  Receive Date: 20140821
  Receipt Date: 20141023
  Transmission Date: 20150528
  Serious: Yes (Death, Hospitalization)
  Sender: FDA-Public Use
  Company Number: DE-BAYER-2014-122078

PATIENT
  Age: 74 Year
  Sex: Male
  Weight: 72 kg

DRUGS (10)
  1. XOFIGO [Suspect]
     Active Substance: RADIUM RA-223 DICHLORIDE
     Indication: METASTASES TO BONE
  2. MIRTAZAPINE. [Concomitant]
     Active Substance: MIRTAZAPINE
     Dosage: 0-0-1-0
  3. XOFIGO [Suspect]
     Active Substance: RADIUM RA-223 DICHLORIDE
     Indication: METASTASES TO SPINE
  4. ENOXAPARIN SODIUM. [Concomitant]
     Active Substance: ENOXAPARIN SODIUM
     Dosage: 0-0-1-0
     Route: 058
  5. VENLAFAXINE [Concomitant]
     Active Substance: VENLAFAXINE HYDROCHLORIDE
     Dosage: 1-0-1-0
  6. BICALUTAMIDE. [Concomitant]
     Active Substance: BICALUTAMIDE
     Dosage: 1-0-0-0
  7. CEFUROXIN [Concomitant]
     Active Substance: CEFUROXIME
     Dosage: 1-0-1-0
  8. MELPERON [Concomitant]
     Active Substance: MELPERONE
     Dosage: 0-0-1-0
  9. XOFIGO [Suspect]
     Active Substance: RADIUM RA-223 DICHLORIDE
     Indication: PROSTATE CANCER STAGE IV
     Dosage: UNK
     Route: 042
     Dates: start: 201405
  10. METOPROLOL SUCCINATE. [Concomitant]
     Active Substance: METOPROLOL SUCCINATE
     Dosage: 1-0-0-0

REACTIONS (11)
  - Gait disturbance [None]
  - Cerebral haemorrhage [Fatal]
  - Neurological decompensation [None]
  - Dizziness [None]
  - Slow speech [None]
  - Radiation neuropathy [None]
  - Fall [None]
  - Amnestic disorder [None]
  - Disorientation [None]
  - Craniocerebral injury [Fatal]
  - Aphasia [None]

NARRATIVE: CASE EVENT DATE: 201405
